FAERS Safety Report 10441803 (Version 1)
Quarter: 2014Q3

REPORT INFORMATION
  Report Type: Spontaneous
  Country: US (occurrence: US)
  Receive Date: 20140909
  Receipt Date: 20140909
  Transmission Date: 20150326
  Serious: Yes (Hospitalization)
  Sender: FDA-Public Use
  Company Number: US-MYLAN-2014M1002811

PATIENT

DRUGS (5)
  1. LASIX [Concomitant]
     Active Substance: FUROSEMIDE
     Indication: FLUID RETENTION
  2. NEURONTIN [Concomitant]
     Active Substance: GABAPENTIN
     Indication: INSOMNIA
     Dosage: 800 MG, QD
     Dates: start: 2004
  3. METOLAZONE TABLETS, USP [Suspect]
     Active Substance: METOLAZONE
     Indication: FLUID RETENTION
     Dosage: 10 MG, BID, PRN
  4. ALDACTONE [Concomitant]
     Active Substance: SPIRONOLACTONE
     Indication: FLUID RETENTION
     Dosage: UNK
  5. NEURONTIN [Concomitant]
     Active Substance: GABAPENTIN
     Dosage: 300 MG, QD

REACTIONS (3)
  - Disorientation [Recovering/Resolving]
  - Fluid retention [Recovering/Resolving]
  - Blood iron decreased [Recovering/Resolving]

NARRATIVE: CASE EVENT DATE: 201404
